FAERS Safety Report 4507554-5 (Version None)
Quarter: 2004Q4

REPORT INFORMATION
  Report Type: 
  Country: None (occurrence: None)
  Receive Date: 20041018
  Receipt Date: 20040902
  Transmission Date: 20050328
  Serious: No
  Sender: FDA-Public Use
  Company Number: 208840

PATIENT
  Age: 46 Year
  Sex: Female
  Weight: 218 kg

DRUGS (12)
  1. XOLAIR [Suspect]
     Indication: ASTHMA
     Dosage: 150 MG, Q4W, SUBCUTANEOUS
     Route: 058
     Dates: start: 20040423
  2. ADVAIR (FLUTICASONE PROPIONATE, SALMETEROL XINAFOATE) [Concomitant]
  3. PREVACID [Concomitant]
  4. SINGULAIR [Concomitant]
  5. ZANTAC [Concomitant]
  6. LOPRESSOR [Concomitant]
  7. LASIX [Concomitant]
  8. K TABS (POTASSIUM CHLORIDE) [Concomitant]
  9. ASTELIN NASAL SPRAY (AZELASTINE HYDROCHLORIDE) [Concomitant]
  10. BEXTRA [Concomitant]
  11. ALBUTEROL (ALBUTEROL SULFATE, ALBUTEROL) [Concomitant]
  12. ATROVENT [Concomitant]

REACTIONS (2)
  - HEADACHE [None]
  - NAUSEA [None]
